FAERS Safety Report 13369980 (Version 2)
Quarter: 2017Q2

REPORT INFORMATION
  Report Type: Spontaneous
  Country: IN (occurrence: IN)
  Receive Date: 20170324
  Receipt Date: 20170417
  Transmission Date: 20170830
  Serious: Yes (Death, Other)
  Sender: FDA-Public Use
  Company Number: IN-PFIZER INC-2017126405

PATIENT
  Age: 76 Year
  Sex: Female

DRUGS (2)
  1. PALBACE [Suspect]
     Active Substance: PALBOCICLIB
     Indication: BREAST CANCER METASTATIC
     Dosage: 125 MG, 1X/DAY
     Route: 048
     Dates: start: 20170206
  2. LETROZOLE. [Concomitant]
     Active Substance: LETROZOLE
     Dosage: UNK

REACTIONS (8)
  - Renal failure [Fatal]
  - Swelling [Unknown]
  - Peripheral swelling [Unknown]
  - Constipation [Unknown]
  - Blood creatinine increased [Unknown]
  - Hepatic failure [Unknown]
  - Decreased appetite [Unknown]
  - Anuria [Unknown]
